FAERS Safety Report 4578358-2 (Version None)
Quarter: 2005Q1

REPORT INFORMATION
  Report Type: 
  Country: None (occurrence: None)
  Receive Date: 20050202
  Receipt Date: 20050202
  Transmission Date: 20050727
  Serious: Yes (Death, Hospitalization)
  Sender: FDA-Public Use
  Company Number: None

PATIENT
  Age: 89 Year
  Sex: Male
  Weight: 61 kg

DRUGS (5)
  1. ALTACE [Suspect]
     Dosage: 10 MG PO Q DAILY
     Route: 048
  2. FOSAMAX [Concomitant]
  3. ASP [Concomitant]
  4. SOTALOL HCL [Concomitant]
  5. COUMADIN [Concomitant]

REACTIONS (9)
  - ACIDOSIS [None]
  - BILIARY TRACT INFECTION [None]
  - CHOLECYSTITIS [None]
  - DISSEMINATED INTRAVASCULAR COAGULATION [None]
  - LIVER FUNCTION TEST ABNORMAL [None]
  - MULTI-ORGAN FAILURE [None]
  - PANCREATITIS [None]
  - SECRETION DISCHARGE [None]
  - SEPTIC SHOCK [None]
